FAERS Safety Report 9686390 (Version 5)
Quarter: 2015Q2

REPORT INFORMATION
  Report Type: Report from Study
  Country: US (occurrence: US)
  Receive Date: 20131113
  Receipt Date: 20150427
  Transmission Date: 20150821
  Serious: Yes (Hospitalization)
  Sender: FDA-Public Use
  Company Number: US-ACTELION-A-NJ2013-88104

PATIENT
  Age: 70 Year
  Sex: Male

DRUGS (8)
  1. TRACLEER [Suspect]
     Active Substance: BOSENTAN\BOSENTAN MONOHYDRATE
     Dosage: 125 MG BID
     Route: 048
     Dates: start: 201111, end: 201308
  2. COUMADIN [Concomitant]
     Active Substance: WARFARIN SODIUM
  3. TREPROSTINIL [Concomitant]
     Active Substance: TREPROSTINIL
  4. VELETRI [Suspect]
     Active Substance: EPOPROSTENOL
     Indication: PULMONARY ARTERIAL HYPERTENSION
     Dosage: 12 NG/KG, PER MIN
     Route: 041
     Dates: start: 20130513
  5. TRACLEER [Suspect]
     Active Substance: BOSENTAN\BOSENTAN MONOHYDRATE
     Indication: PULMONARY ARTERIAL HYPERTENSION
     Dosage: 125 MG QD
     Route: 048
     Dates: start: 201308
  6. LASIX [Concomitant]
     Active Substance: FUROSEMIDE
     Dosage: 40 MG, QD
     Dates: start: 201308
  7. LASIX [Concomitant]
     Active Substance: FUROSEMIDE
     Dosage: 10 MG QD
  8. METFORMIN [Concomitant]
     Active Substance: METFORMIN HYDROCHLORIDE
     Indication: ESSENTIAL HYPERTENSION
     Dosage: 850 MG, QD

REACTIONS (9)
  - Dyspnoea [Recovering/Resolving]
  - Liver function test abnormal [Unknown]
  - Pulmonary hypertension [Unknown]
  - Abdominal distension [Unknown]
  - Depression [Recovering/Resolving]
  - Fluid retention [Recovering/Resolving]
  - Headache [Unknown]
  - Oedema peripheral [Unknown]
  - Condition aggravated [Unknown]

NARRATIVE: CASE EVENT DATE: 201308
